FAERS Safety Report 6136690-5 (Version None)
Quarter: 2009Q1

REPORT INFORMATION
  Report Type: 
  Country: None (occurrence: None)
  Receive Date: 20090330
  Receipt Date: 20090224
  Transmission Date: 20090719
  Serious: Yes (Other)
  Sender: FDA-Public Use
  Company Number: PHHY2009MX11016

PATIENT
  Sex: Male

DRUGS (1)
  1. TRILEPTAL [Suspect]
     Indication: EPILEPSY
     Dosage: 200 MG, (6 TABLETS DAILY)
     Dates: start: 20010101

REACTIONS (4)
  - PAIN [None]
  - SPEECH DISORDER [None]
  - THERAPY CESSATION [None]
  - TREATMENT NONCOMPLIANCE [None]
